FAERS Safety Report 10222453 (Version 1)
Quarter: 2014Q2

REPORT INFORMATION
  Report Type: Spontaneous
  Country: GB (occurrence: GB)
  Receive Date: 20140606
  Receipt Date: 20140606
  Transmission Date: 20141212
  Serious: Yes (Hospitalization)
  Sender: FDA-Public Use
  Company Number: GB-JNJFOC-20140600053

PATIENT
  Age: 76 Year
  Sex: Male

DRUGS (4)
  1. PARACETAMOL [Suspect]
     Indication: PAIN
     Route: 065
  2. ATARAX [Suspect]
     Indication: RASH PRURITIC
     Route: 065
     Dates: start: 20010712
  3. ATARAX [Suspect]
     Indication: RASH PRURITIC
     Route: 065
     Dates: start: 200101
  4. GTN [Concomitant]
     Indication: PRODUCT USED FOR UNKNOWN INDICATION
     Route: 065

REACTIONS (4)
  - Hepatorenal failure [Unknown]
  - Disseminated intravascular coagulation [Unknown]
  - Ventricular tachycardia [Unknown]
  - Liver function test abnormal [Unknown]
